FAERS Safety Report 7897205-4 (Version None)
Quarter: 2011Q4

REPORT INFORMATION
  Report Type: 
  Country: None (occurrence: None)
  Receive Date: 20111107
  Receipt Date: 20111102
  Transmission Date: 20120403
  Serious: Yes (Hospitalization, Other)
  Sender: FDA-Public Use
  Company Number: US-BAYER-2011-104155

PATIENT
  Age: 2 Year
  Sex: Male

DRUGS (2)
  1. KOGENATE FS [Suspect]
     Indication: IMMUNE TOLERANCE INDUCTION
  2. KOGENATE FS [Suspect]
     Indication: FACTOR VIII DEFICIENCY

REACTIONS (4)
  - PYREXIA [None]
  - OTITIS MEDIA [None]
  - ANTI FACTOR VIII ANTIBODY POSITIVE [None]
  - PNEUMONIA [None]
